FAERS Safety Report 10419972 (Version 1)
Quarter: 2014Q2

REPORT INFORMATION
  Report Type: Spontaneous
  Country: US (occurrence: None)
  Receive Date: 20140619
  Receipt Date: 20140619
  Transmission Date: 20141212
  Serious: Yes (Death, Other)
  Sender: FDA-Public Use
  Company Number: 1685342

PATIENT
  Sex: 0

DRUGS (3)
  1. FOSCARNET SODIUM [Suspect]
     Indication: CYTOMEGALOVIRUS INFECTION
     Dosage: NOT REPORTED, NOT REPORTED (UNKNOWN) (UNKNOWN)
  2. GANCICLOVIR [Suspect]
     Indication: CYTOMEGALOVIRUS INFECTION
     Dosage: NOT REPORTED, NOT REPORTED, UNKNOWN, UNKNOWN
  3. CIDOFOVIR [Suspect]
     Indication: CYTOMEGALOVIRUS INFECTION
     Dosage: NOT REPORTED, NOT REPORTED, UNKNOWN, UNKNOWN?

REACTIONS (2)
  - Treatment failure [None]
  - Renal failure [None]
